FAERS Safety Report 10035539 (Version 3)
Quarter: 2014Q2

REPORT INFORMATION
  Report Type: Spontaneous
  Country: US (occurrence: US)
  Receive Date: 20140325
  Receipt Date: 20140409
  Transmission Date: 20141212
  Serious: No
  Sender: FDA-Public Use
  Company Number: US-PFIZER INC-2014082572

PATIENT
  Age: 66 Year
  Sex: Female
  Weight: 54 kg

DRUGS (3)
  1. CHANTIX [Suspect]
     Indication: SMOKING CESSATION THERAPY
     Dosage: UNK
     Dates: start: 20140213, end: 20140223
  2. ATORVASTATIN [Concomitant]
     Indication: BLOOD CHOLESTEROL INCREASED
     Dosage: 10 MG, 1X/DAY
  3. PROLIA [Concomitant]
     Indication: OSTEOPOROSIS
     Dosage: UNK, EVERY SIX MONTHS

REACTIONS (9)
  - Dizziness [Unknown]
  - Nausea [Unknown]
  - Nightmare [Unknown]
  - Myalgia [Unknown]
  - Muscle spasms [Unknown]
  - Hot flush [Unknown]
  - Pruritus [Unknown]
  - Formication [Unknown]
  - Malaise [Unknown]
